FAERS Safety Report 4907884-9 (Version None)
Quarter: 2006Q1

REPORT INFORMATION
  Report Type: 
  Country: None (occurrence: None)
  Receive Date: 20060210
  Receipt Date: 20060113
  Transmission Date: 20060701
  Serious: Yes (Hospitalization, Other)
  Sender: FDA-Public Use
  Company Number: AU-AVENTIS-200610433GDDC

PATIENT
  Age: 64 Year
  Sex: Female

DRUGS (9)
  1. ARAVA [Suspect]
     Indication: RHEUMATOID ARTHRITIS
     Route: 048
     Dates: start: 20030117, end: 20050901
  2. SULFASALAZINE [Concomitant]
     Dosage: DOSE: UNK
  3. CELECOXIB [Concomitant]
     Dosage: DOSE: UNK
  4. PREDNISONE [Concomitant]
     Dosage: DOSE: UNK
  5. PRINIVIL [Concomitant]
     Dosage: DOSE: UNK
  6. PROGOUT [Concomitant]
     Dosage: DOSE: UNK
  7. INSULIN [Concomitant]
     Dosage: DOSE: UNK
  8. ZOCOR [Concomitant]
     Dosage: DOSE: UNK
  9. METHOTREXATE [Concomitant]
     Dosage: DOSE: UNK

REACTIONS (3)
  - INFECTION [None]
  - LUNG DISORDER [None]
  - PNEUMONIA [None]
